FAERS Safety Report 8546957-9 (Version None)
Quarter: 2012Q3

REPORT INFORMATION
  Report Type: 
  Country: None (occurrence: None)
  Receive Date: 20120727
  Receipt Date: 20120719
  Transmission Date: 20120928
  Serious: Yes (Other)
  Sender: FDA-Public Use
  Company Number: US-ASTRAZENECA-2012SE51277

PATIENT
  Age: 52 Year
  Sex: Male

DRUGS (1)
  1. NEXIUM [Suspect]
     Route: 048

REACTIONS (5)
  - CROHN'S DISEASE [None]
  - MOBILITY DECREASED [None]
  - ARTERIAL OCCLUSIVE DISEASE [None]
  - DEVICE OCCLUSION [None]
  - OSTEOARTHRITIS [None]
